FAERS Safety Report 10261513 (Version 1)
Quarter: 2014Q2

REPORT INFORMATION
  Report Type: Spontaneous
  Country: US (occurrence: US)
  Receive Date: 20140626
  Receipt Date: 20140626
  Transmission Date: 20141212
  Serious: No
  Sender: FDA-Public Use
  Company Number: US-MYLANLABS-2013S1021793

PATIENT
  Age: 80 Year
  Sex: Male

DRUGS (3)
  1. PERFOROMIST (FORMOTEROL FUMARATE) INHALATION SOLUTION [Suspect]
     Indication: CHRONIC OBSTRUCTIVE PULMONARY DISEASE
     Route: 055
     Dates: start: 201309
  2. PERFOROMIST (FORMOTEROL FUMARATE) INHALATION SOLUTION [Suspect]
     Indication: PULMONARY MASS
     Route: 055
     Dates: start: 201309
  3. PROAIR HFA [Concomitant]
     Indication: LUNG DISORDER
     Route: 048
     Dates: start: 201309

REACTIONS (3)
  - Eye pain [Not Recovered/Not Resolved]
  - Lacrimation increased [Not Recovered/Not Resolved]
  - Erythema of eyelid [Not Recovered/Not Resolved]
